FAERS Safety Report 16007143 (Version 1)
Quarter: 2019Q1

REPORT INFORMATION
  Report Type: Spontaneous
  Country: IT (occurrence: IT)
  Receive Date: 20190226
  Receipt Date: 20190226
  Transmission Date: 20190418
  Serious: Yes (Other)
  Sender: FDA-Public Use
  Company Number: IT-JNJFOC-20190228316

PATIENT
  Age: 28 Year
  Sex: Female

DRUGS (3)
  1. PURINETHOL [Suspect]
     Active Substance: MERCAPTOPURINE
     Indication: COLITIS ULCERATIVE
     Dosage: CUMULATIVE DOSE TO FIRST REACTION- 3600 MG
     Route: 048
     Dates: start: 20180313, end: 20180730
  2. SIMPONI [Suspect]
     Active Substance: GOLIMUMAB
     Indication: COLITIS ULCERATIVE
     Route: 058
  3. PENTACOL [Concomitant]
     Active Substance: MESALAMINE
     Indication: COLITIS ULCERATIVE
     Route: 048

REACTIONS (3)
  - Colectomy total [Recovered/Resolved with Sequelae]
  - Colitis ulcerative [Recovered/Resolved with Sequelae]
  - Haematochezia [Recovered/Resolved with Sequelae]

NARRATIVE: CASE EVENT DATE: 20180430
